FAERS Safety Report 11102696 (Version 2)
Quarter: 2020Q3

REPORT INFORMATION
  Report Type: Report from Study
  Country: CA (occurrence: CA)
  Receive Date: 20150511
  Receipt Date: 20200804
  Transmission Date: 20201102
  Serious: Yes (Other)
  Sender: FDA-Public Use
  Company Number: CA-AMGEN-CANSL2015044761

PATIENT
  Age: 71 Year
  Sex: Female

DRUGS (5)
  1. VASOTEC [Concomitant]
     Active Substance: ENALAPRIL MALEATE
     Dosage: UNK
  2. TECTA [Concomitant]
     Active Substance: PANTOPRAZOLE MAGNESIUM
     Dosage: UNK
  3. GLUTATHIONE [Concomitant]
     Active Substance: GLUTATHIONE
     Indication: LUNG DISORDER
     Dosage: UNK
  4. CALCIUM [Concomitant]
     Active Substance: CALCIUM
     Dosage: UNK
  5. ENBREL [Suspect]
     Active Substance: ETANERCEPT
     Indication: RHEUMATOID ARTHRITIS
     Dosage: 50 MILLIGRAM, QWK
     Route: 065
     Dates: start: 20010731, end: 202002

REACTIONS (5)
  - Pulmonary fibrosis [Unknown]
  - Crohn^s disease [Unknown]
  - Bronchitis [Unknown]
  - Illness [Unknown]
  - Pneumonia [Unknown]
